FAERS Safety Report 4814632-X (Version None)
Quarter: 2005Q4

REPORT INFORMATION
  Report Type: 
  Country: None (occurrence: None)
  Receive Date: 20051028
  Receipt Date: 20051006
  Transmission Date: 20060501
  Serious: Yes (Other)
  Sender: FDA-Public Use
  Company Number: ES-GLAXOSMITHKLINE-B0396692A

PATIENT
  Age: 54 Year
  Sex: Female

DRUGS (4)
  1. AVANDIA [Suspect]
     Indication: DIABETES MELLITUS
     Dosage: 4MG TWICE PER DAY
     Route: 048
     Dates: start: 20030701
  2. PRAVASTATIN [Suspect]
     Indication: DIABETES MELLITUS
     Dosage: 20MG PER DAY
     Route: 048
     Dates: start: 20020101
  3. GLICLAZIDE [Concomitant]
     Dosage: 80MG PER DAY
     Route: 048
  4. UNKNOWN MEDICATION [Concomitant]
     Dosage: 100MG PER DAY
     Route: 048

REACTIONS (3)
  - ARTHRALGIA [None]
  - LEUKOPENIA [None]
  - NEUTROPENIA [None]
